FAERS Safety Report 11828665 (Version 1)
Quarter: 2015Q4

REPORT INFORMATION
  Report Type: Spontaneous
  Country: US (occurrence: US)
  Receive Date: 20151211
  Receipt Date: 20151211
  Transmission Date: 20160305
  Serious: No
  Sender: FDA-Public Use
  Company Number: US-JUBILANT CADISTA PHARMACEUTICALS-2015JUB00227

PATIENT
  Age: 76 Year
  Sex: Female
  Weight: 69.39 kg

DRUGS (6)
  1. METHYLPREDNISOLONE. [Suspect]
     Active Substance: METHYLPREDNISOLONE
     Dosage: UNK
     Route: 048
     Dates: start: 20150724, end: 201507
  2. METHYLPREDNISOLONE. [Suspect]
     Active Substance: METHYLPREDNISOLONE
     Indication: BACK PAIN
     Dosage: 4 MG, 3X/DAY
     Route: 048
     Dates: start: 20150722, end: 20150722
  3. METHYLPREDNISOLONE. [Suspect]
     Active Substance: METHYLPREDNISOLONE
     Dosage: 8 MG, ONCE
     Route: 048
     Dates: start: 20150722, end: 20150722
  4. PREVACID [Concomitant]
     Active Substance: LANSOPRAZOLE
     Dosage: UNK, 1X/DAY
  5. NORTRIPTYLINE [Concomitant]
     Active Substance: NORTRIPTYLINE
     Dosage: 25 MG, 1X/DAY
  6. METHYLPREDNISOLONE. [Suspect]
     Active Substance: METHYLPREDNISOLONE
     Dosage: 4 MG, ONCE
     Route: 048
     Dates: start: 20150723

REACTIONS (5)
  - Blood pressure increased [Recovered/Resolved]
  - Skin warm [Recovered/Resolved]
  - Erythema [Recovered/Resolved]
  - Headache [Recovered/Resolved]
  - Burning sensation [Recovered/Resolved]

NARRATIVE: CASE EVENT DATE: 20150722
